FAERS Safety Report 4309499-2 (Version None)
Quarter: 2004Q1

REPORT INFORMATION
  Report Type: 
  Country: None (occurrence: None)
  Receive Date: 20040301
  Receipt Date: 20040217
  Transmission Date: 20041129
  Serious: Yes (Hospitalization)
  Sender: FDA-Public Use
  Company Number: 04P-167-0250789-00

PATIENT
  Age: 42 Year
  Sex: Female
  Weight: 110 kg

DRUGS (8)
  1. HUMIRA [Suspect]
     Indication: RHEUMATOID ARTHRITIS
     Dosage: 40 MG, SUBCUTANEOUS
     Route: 058
     Dates: start: 20030801, end: 20040101
  2. FOLIC ACID [Concomitant]
  3. PAROXETINE HCL [Concomitant]
  4. BENDROFLUMETHIAZIDE [Concomitant]
  5. AMLODIPINE [Concomitant]
  6. LANSOPRAZOLE [Concomitant]
  7. DICLOFENAC [Concomitant]
  8. TRAMADOL [Concomitant]

REACTIONS (1)
  - LOWER RESPIRATORY TRACT INFECTION [None]
